FAERS Safety Report 14375873 (Version 1)
Quarter: 2018Q1

REPORT INFORMATION
  Report Type: Spontaneous
  Country: US (occurrence: US)
  Receive Date: 20180110
  Receipt Date: 20180110
  Transmission Date: 20180509
  Serious: Yes (Disabling)
  Sender: FDA-Public Use
  Company Number: None

PATIENT
  Sex: Male
  Weight: 65.25 kg

DRUGS (6)
  1. LEVOTHYROXINE. [Concomitant]
     Active Substance: LEVOTHYROXINE
  2. CARVEDILOL. [Concomitant]
     Active Substance: CARVEDILOL
  3. ASPIRIN 325 [Concomitant]
     Active Substance: ASPIRIN
  4. IBUPROFEN. [Concomitant]
     Active Substance: IBUPROFEN
  5. ALLOPURINOL. [Concomitant]
     Active Substance: ALLOPURINOL
  6. ALLOPURINOL 300MG [Suspect]
     Active Substance: ALLOPURINOL
     Indication: GOUT
     Dosage: ?          QUANTITY:1 TABLET(S);?
     Route: 048
     Dates: start: 20171105, end: 20180108

REACTIONS (3)
  - Idiosyncratic drug reaction [None]
  - Therapy non-responder [None]
  - Product quality issue [None]

NARRATIVE: CASE EVENT DATE: 20171216
